FAERS Safety Report 13447090 (Version 3)
Quarter: 2017Q3

REPORT INFORMATION
  Report Type: Spontaneous
  Country: US (occurrence: US)
  Receive Date: 20170417
  Receipt Date: 20170705
  Transmission Date: 20171127
  Serious: Yes (Other)
  Sender: FDA-Public Use
  Company Number: US-PFIZER INC-2017163982

PATIENT
  Age: 55 Year
  Sex: Female

DRUGS (1)
  1. XELJANZ XR [Suspect]
     Active Substance: TOFACITINIB CITRATE
     Indication: RHEUMATOID ARTHRITIS
     Dosage: 11 MG, 1X/DAY
     Dates: start: 201702, end: 2017

REACTIONS (5)
  - Blood cholesterol increased [Not Recovered/Not Resolved]
  - Decreased immune responsiveness [Unknown]
  - Malaise [Unknown]
  - Respiratory tract infection [Recovered/Resolved]
  - Sinusitis [Unknown]

NARRATIVE: CASE EVENT DATE: 201702
